FAERS Safety Report 10832139 (Version 1)
Quarter: 2015Q1

REPORT INFORMATION
  Report Type: Spontaneous
  Country: US (occurrence: US)
  Receive Date: 20150219
  Receipt Date: 20150219
  Transmission Date: 20150721
  Serious: Yes (Hospitalization, Disabling)
  Sender: FDA-Public Use
  Company Number: US-BAYER-2015-022047

PATIENT
  Sex: Female

DRUGS (1)
  1. BEYAZ [Suspect]
     Active Substance: DROSPIRENONE\ETHINYL ESTRADIOL\LEVOMEFOLATE CALCIUM
     Dosage: UNK
     Route: 048
     Dates: start: 201112

REACTIONS (8)
  - Emotional distress [None]
  - Deep vein thrombosis [None]
  - Injury [None]
  - Gait disturbance [None]
  - Procedural pain [None]
  - Anxiety [None]
  - Pain in extremity [None]
  - Activities of daily living impaired [None]

NARRATIVE: CASE EVENT DATE: 20120202
